FAERS Safety Report 5336517-5 (Version None)
Quarter: 2007Q2

REPORT INFORMATION
  Report Type: 
  Country: None (occurrence: None)
  Receive Date: 20070524
  Receipt Date: 20070514
  Transmission Date: 20071010
  Serious: Yes (Other)
  Sender: FDA-Public Use
  Company Number: 2007-02346

PATIENT
  Age: 62 Year
  Sex: Female

DRUGS (5)
  1. ACETAZOLAMIDE (WATSON LABORATORIES)(ACETAZOLAMIDE) TABLET, 250MG [Suspect]
     Indication: CORNEAL OEDEMA
     Dosage: 500 MG, SINGLE, INTRAVENOUS
     Route: 042
     Dates: start: 20060101, end: 20060101
  2. MANNITOL SOLUTION (MANNITOL) [Concomitant]
  3. PREDNISOLONE ACETATE [Concomitant]
  4. TIMOLOL MALEATE [Concomitant]
  5. IOPIDINE (APRACLONIDINE) [Concomitant]

REACTIONS (4)
  - ANGLE CLOSURE GLAUCOMA [None]
  - BLINDNESS [None]
  - CHOROIDAL EFFUSION [None]
  - HEADACHE [None]
